FAERS Safety Report 10394050 (Version 2)
Quarter: 2014Q3

REPORT INFORMATION
  Report Type: Spontaneous
  Country: JP (occurrence: JP)
  Receive Date: 20140819
  Receipt Date: 20140821
  Transmission Date: 20150326
  Serious: Yes (Other)
  Sender: FDA-Public Use
  Company Number: JP-PFIZER INC-2014229665

PATIENT
  Age: 20 Year
  Sex: Male

DRUGS (1)
  1. LYRICA [Suspect]
     Active Substance: PREGABALIN
     Dosage: UNK
     Route: 048

REACTIONS (3)
  - Haemorrhage subcutaneous [Unknown]
  - Oedema peripheral [Unknown]
  - Pain [Unknown]

NARRATIVE: CASE EVENT DATE: 201406
